FAERS Safety Report 7635899-9 (Version None)
Quarter: 2011Q3

REPORT INFORMATION
  Report Type: 
  Country: None (occurrence: None)
  Receive Date: 20110726
  Receipt Date: 20110712
  Transmission Date: 20111222
  Serious: Yes (Death, Congenital Anomaly)
  Sender: FDA-Public Use
  Company Number: IN-MYLANLABS-2011S1014811

PATIENT
  Sex: Male

DRUGS (2)
  1. ZOLPIDEM [Suspect]
     Dosage: 700-800 MG/DAY
     Route: 064
  2. ZOLPIDEM [Suspect]
     Indication: DRUG ABUSE
     Dosage: 100 MG/DAY
     Route: 064

REACTIONS (3)
  - CONGENITAL HYDROCEPHALUS [None]
  - MENINGOMYELOCELE [None]
  - MATERNAL EXPOSURE DURING PREGNANCY [None]
